FAERS Safety Report 5989901-0 (Version None)
Quarter: 2008Q4

REPORT INFORMATION
  Report Type: 
  Country: None (occurrence: None)
  Receive Date: 20081210
  Receipt Date: 20081128
  Transmission Date: 20090506
  Serious: Yes (Other)
  Sender: FDA-Public Use
  Company Number: FR-AMGEN-UK291178

PATIENT
  Age: 68 Year
  Sex: Female

DRUGS (8)
  1. KINERET [Suspect]
     Indication: DRUG USE FOR UNKNOWN INDICATION
     Dates: start: 20051120
  2. KINERET [Suspect]
     Dates: start: 20051201, end: 20060401
  3. KINERET [Suspect]
     Dates: start: 20060601
  4. COLCHICINE [Concomitant]
  5. AMLOD [Concomitant]
  6. LASIX [Concomitant]
  7. COZAAR [Concomitant]
  8. ARANESP [Concomitant]

REACTIONS (2)
  - BODY FAT DISORDER [None]
  - HYPERTENSION [None]
